FAERS Safety Report 7222947-3 (Version None)
Quarter: 2011Q1

REPORT INFORMATION
  Report Type: 
  Country: None (occurrence: None)
  Receive Date: 20110109
  Receipt Date: 20110109
  Transmission Date: 20110831
  Serious: Yes (Hospitalization)
  Sender: FDA-Public Use
  Company Number: None

PATIENT
  Age: 78 Year
  Sex: Female
  Weight: 48.8 kg

DRUGS (4)
  1. FERROUS SULFATE TAB [Concomitant]
  2. BIFLEX [Concomitant]
  3. LASIX [Suspect]
     Dosage: 60 MG DAILY ORALLY
  4. BENADRYL [Suspect]
     Indication: RASH
     Dosage: COPIUS AMOUNTS AS NEEDED
     Route: 061

REACTIONS (4)
  - URINARY TRACT INFECTION [None]
  - RASH [None]
  - ENCEPHALOPATHY [None]
  - TOXICITY TO VARIOUS AGENTS [None]
